FAERS Safety Report 9973198 (Version 2)
Quarter: 2014Q1

REPORT INFORMATION
  Report Type: Report from Study
  Country: US (occurrence: US)
  Receive Date: 20140306
  Receipt Date: 20140306
  Transmission Date: 20141002
  Serious: Yes (Hospitalization)
  Sender: FDA-Public Use
  Company Number: US-ABBVIE-13P-163-1097120-00

PATIENT
  Age: 64 Year
  Sex: Female
  Weight: 104.42 kg

DRUGS (11)
  1. HUMIRA [Suspect]
     Indication: RHEUMATOID ARTHRITIS
     Dosage: WEEKLY
     Dates: start: 201002
  2. METOPROLOL TARTRATE [Concomitant]
     Indication: HYPERTENSION
     Route: 048
  3. HCTZ [Concomitant]
     Indication: FLUID RETENTION
     Dosage: 25 MG DAILY
     Route: 048
  4. HCTZ [Concomitant]
     Indication: HYPERTENSION
  5. ALEVE [Concomitant]
     Indication: OSTEOARTHRITIS
     Dosage: 220 MG (2) TABLETS
     Route: 048
  6. BABY ASPIRIN [Concomitant]
     Indication: PROPHYLAXIS
     Dosage: 81 MG DAILY
     Route: 048
  7. BABY ASPIRIN [Concomitant]
     Indication: THROMBOSIS
  8. VOLTAREN [Concomitant]
     Indication: OSTEOARTHRITIS
     Dosage: USED TO HANDS, UP TO FOUR TIMES DAILY
  9. CIPROFLOXACIN [Concomitant]
     Indication: PRODUCT USED FOR UNKNOWN INDICATION
     Dosage: EYE DROPS
     Route: 047
  10. DUREZOL [Concomitant]
     Indication: PRODUCT USED FOR UNKNOWN INDICATION
     Dosage: EYE DROPS
  11. UNKNOWN EYE DROP [Concomitant]
     Indication: PRODUCT USED FOR UNKNOWN INDICATION

REACTIONS (1)
  - Cataract [Recovered/Resolved]
